FAERS Safety Report 6566671-9 (Version None)
Quarter: 2010Q1

REPORT INFORMATION
  Report Type: 
  Country: None (occurrence: None)
  Receive Date: 20100202
  Receipt Date: 20100128
  Transmission Date: 20100710
  Serious: Yes (Other)
  Sender: FDA-Public Use
  Company Number: CN-ROCHE-682021

PATIENT
  Age: 76 Year
  Sex: Female
  Weight: 46 kg

DRUGS (2)
  1. XELODA [Suspect]
     Indication: DRUG USE FOR UNKNOWN INDICATION
     Dosage: THE INDICATION REPORTED AS BREAST CANCER AND COLON CANCER.
     Route: 048
     Dates: start: 20090101, end: 20090101
  2. XELODA [Suspect]
     Dosage: THE INDICATION REPORTED AS DISEASE PROGRESSION OF COLON CANCER.
     Route: 048
     Dates: start: 20090901, end: 20091101

REACTIONS (1)
  - COLON CANCER [None]
